FAERS Safety Report 7992893-6 (Version None)
Quarter: 2011Q4

REPORT INFORMATION
  Report Type: 
  Country: None (occurrence: None)
  Receive Date: 20111219
  Receipt Date: 20110321
  Transmission Date: 20120403
  Serious: No
  Sender: FDA-Public Use
  Company Number: US-ASTRAZENECA-2011SE10221

PATIENT
  Sex: Male

DRUGS (1)
  1. CRESTOR [Suspect]
     Indication: PERIPHERAL VASCULAR DISORDER
     Dosage: 1/2 TABLET 3 DAYS/WEEK
     Route: 048

REACTIONS (2)
  - MYALGIA [None]
  - OFF LABEL USE [None]
